FAERS Safety Report 23829625 (Version 7)
Quarter: 2025Q2

REPORT INFORMATION
  Report Type: Report from Study
  Country: ES (occurrence: ES)
  Receive Date: 20240508
  Receipt Date: 20250528
  Transmission Date: 20250716
  Serious: Yes (Life-Threatening, Hospitalization, Other)
  Sender: TAKEDA
  Company Number: ES-TAKEDA-2024TUS044575

PATIENT
  Age: 70 Year
  Sex: Male

DRUGS (17)
  1. TEDUGLUTIDE [Suspect]
     Active Substance: TEDUGLUTIDE
     Indication: Short-bowel syndrome
     Dosage: 3.95 MILLIGRAM, QD
     Dates: start: 20190425, end: 20210630
  2. TEDUGLUTIDE [Suspect]
     Active Substance: TEDUGLUTIDE
     Dosage: 1.9 MILLIGRAM, QD
     Dates: start: 20210630, end: 20210727
  3. TEDUGLUTIDE [Suspect]
     Active Substance: TEDUGLUTIDE
     Dosage: 3.6 MILLIGRAM, QD
     Dates: start: 20210728, end: 20210930
  4. TEDUGLUTIDE [Suspect]
     Active Substance: TEDUGLUTIDE
     Dosage: 3.7 MILLIGRAM, QD
     Dates: start: 20211001
  5. RIFAXIMIN [Concomitant]
     Active Substance: RIFAXIMIN
     Indication: Abdominal pain upper
     Dosage: 200 MILLIGRAM, TID
     Dates: start: 20240415, end: 20240422
  6. RIFAXIMIN [Concomitant]
     Active Substance: RIFAXIMIN
     Indication: Overgrowth bacterial
     Dosage: 200 MILLIGRAM, TID
     Dates: start: 20240430, end: 20240507
  7. Fisiogen Ferro Forte [Concomitant]
     Indication: Iron deficiency
     Dosage: UNK UNK, QD
     Dates: start: 20230728
  8. EBASTINE [Concomitant]
     Active Substance: EBASTINE
     Indication: Urticaria chronic
     Dosage: UNK UNK, BID
     Dates: start: 20220509
  9. LANSOPRAZOLE [Concomitant]
     Active Substance: LANSOPRAZOLE
     Indication: Gastrointestinal disorder prophylaxis
     Dosage: 30 MILLIGRAM, QD
     Dates: start: 20100127
  10. Natecal d flash [Concomitant]
     Indication: Prophylaxis
     Dosage: UNK UNK, QD
     Dates: start: 20111025
  11. CALCIFEDIOL [Concomitant]
     Active Substance: CALCIFEDIOL
     Indication: Prophylaxis
     Dosage: UNK UNK, 1/WEEK
     Dates: start: 20120920
  12. POLARAMINE [Concomitant]
     Active Substance: DEXCHLORPHENIRAMINE MALEATE
     Indication: Urticaria chronic
     Dosage: UNK UNK, QD
     Dates: start: 20100127
  13. Virirec [Concomitant]
     Indication: Erectile dysfunction
     Route: 061
  14. PANCRELIPASE [Concomitant]
     Active Substance: PANCRELIPASE
     Indication: Pancreatic failure
  15. SANDOSTATIN LAR DEPOT [Concomitant]
     Active Substance: OCTREOTIDE ACETATE
     Indication: Gastrointestinal stoma complication
  16. FUROSEMIDE [Concomitant]
     Active Substance: FUROSEMIDE
     Indication: Hypervolaemia
     Dosage: 20 MILLIGRAM, QD
     Dates: start: 20241115
  17. LOPERAMIDE HYDROCHLORIDE [Concomitant]
     Active Substance: LOPERAMIDE HYDROCHLORIDE
     Indication: Peristalsis visible
     Dosage: 2 MILLIGRAM, TID
     Dates: start: 202410

REACTIONS (13)
  - Procedural haemorrhage [Recovered/Resolved]
  - Stoma site haemorrhage [Recovered/Resolved]
  - Septic shock [Recovered/Resolved]
  - Sepsis [Recovered/Resolved]
  - Erectile dysfunction [Not Recovered/Not Resolved]
  - Hepatic cirrhosis [Not Recovered/Not Resolved]
  - Acute kidney injury [Recovered/Resolved]
  - Renal failure [Recovered/Resolved with Sequelae]
  - Bile duct stone [Recovered/Resolved]
  - Duodenal polyp [Not Recovered/Not Resolved]
  - Pleural effusion [Not Recovered/Not Resolved]
  - Respiratory syncytial virus infection [Recovered/Resolved]
  - Oedema [Recovered/Resolved]

NARRATIVE: CASE EVENT DATE: 20240430
